FAERS Safety Report 10601284 (Version 4)
Quarter: 2015Q2

REPORT INFORMATION
  Report Type: Report from Study
  Country: JP (occurrence: JP)
  Receive Date: 20141124
  Receipt Date: 20150610
  Transmission Date: 20150821
  Serious: Yes (Other)
  Sender: FDA-Public Use
  Company Number: PHHY2014JP130569

PATIENT
  Age: 46 Year
  Sex: Male
  Weight: 78 kg

DRUGS (25)
  1. CLOZARIL [Suspect]
     Active Substance: CLOZAPINE
     Dosage: 300 MG, QD
     Route: 048
     Dates: start: 20131009, end: 20131105
  2. LEVOMEPROMAZINE [Concomitant]
     Active Substance: LEVOMEPROMAZINE
     Indication: SCHIZOPHRENIA, PARANOID TYPE
     Dosage: 75 MG, QD
     Route: 048
     Dates: start: 20130515
  3. BENZALIN [Concomitant]
     Active Substance: NITRAZEPAM
     Indication: SCHIZOPHRENIA, PARANOID TYPE
     Dosage: 5 MG, QD
     Route: 048
  4. VEGETAMIN A [Concomitant]
     Active Substance: CHLORPROMAZINE HYDROCHLORIDE\PHENOBARBITAL\PROMETHAZINE
     Indication: SCHIZOPHRENIA, PARANOID TYPE
     Dosage: 1 DF, QD
     Route: 048
     Dates: end: 20130821
  5. CLOZARIL [Suspect]
     Active Substance: CLOZAPINE
     Dosage: 175 MG, QD
     Route: 048
     Dates: start: 20130601, end: 20130603
  6. CLOZARIL [Suspect]
     Active Substance: CLOZAPINE
     Dosage: 250 MG, QD
     Route: 048
     Dates: start: 20130703, end: 20130815
  7. CLOZARIL [Suspect]
     Active Substance: CLOZAPINE
     Indication: SCHIZOPHRENIA, PARANOID TYPE
     Dosage: 12.5 MG, QD
     Route: 048
     Dates: start: 20130515, end: 20130515
  8. CLOZARIL [Suspect]
     Active Substance: CLOZAPINE
     Dosage: 25 MG, QD
     Route: 048
     Dates: start: 20130516, end: 20130518
  9. CLOZARIL [Suspect]
     Active Substance: CLOZAPINE
     Dosage: 425 MG, QD
     Route: 048
     Dates: start: 20140221
  10. CLOZARIL [Suspect]
     Active Substance: CLOZAPINE
     Dosage: 75 MG, QD
     Route: 048
     Dates: start: 20130522, end: 20130523
  11. CLOZARIL [Suspect]
     Active Substance: CLOZAPINE
     Dosage: 100 MG, QD
     Route: 048
     Dates: start: 20130524, end: 20130525
  12. CLOZARIL [Suspect]
     Active Substance: CLOZAPINE
     Dosage: 125 MG, QD
     Route: 048
     Dates: start: 20130526, end: 20130528
  13. SENNOSIDE [Concomitant]
     Active Substance: SENNOSIDES
     Indication: SCHIZOPHRENIA, PARANOID TYPE
     Dosage: 48 MG, QD
     Route: 048
  14. KOLANTYL [Concomitant]
     Active Substance: DICYCLOMINE HYDROCHLORIDE
     Indication: SCHIZOPHRENIA, PARANOID TYPE
     Dosage: 3000 MG, QD
     Route: 048
  15. CLOZARIL [Suspect]
     Active Substance: CLOZAPINE
     Dosage: 150 MG, QD
     Route: 048
     Dates: start: 20130529, end: 20130531
  16. CLOZARIL [Suspect]
     Active Substance: CLOZAPINE
     Dosage: 300 MG, QD
     Route: 048
     Dates: start: 20130610, end: 20130702
  17. CLOZARIL [Suspect]
     Active Substance: CLOZAPINE
     Dosage: 350 MG, QD
     Route: 048
     Dates: start: 20131106
  18. FLUMEZIN [Concomitant]
     Indication: SCHIZOPHRENIA, PARANOID TYPE
     Dosage: 9 MG, QD
     Route: 048
     Dates: start: 20130515, end: 20130522
  19. TASMOLIN [Concomitant]
     Active Substance: BIPERIDEN
     Indication: SCHIZOPHRENIA, PARANOID TYPE
     Dosage: 8 MG, QD
     Route: 048
  20. CLOZARIL [Suspect]
     Active Substance: CLOZAPINE
     Dosage: 50 MG, QD
     Route: 048
     Dates: start: 20130519, end: 20130521
  21. CLOZARIL [Suspect]
     Active Substance: CLOZAPINE
     Dosage: 300 MG, QD
     Route: 048
     Dates: start: 20130816, end: 20130910
  22. CLOZARIL [Suspect]
     Active Substance: CLOZAPINE
     Dosage: 325 MG, QD
     Route: 048
     Dates: start: 20130911, end: 20131008
  23. CLOZARIL [Suspect]
     Active Substance: CLOZAPINE
     Dosage: 250 MG, QD
     Route: 048
     Dates: start: 20130606, end: 20130609
  24. ROHYPNOL [Concomitant]
     Active Substance: FLUNITRAZEPAM
     Indication: SCHIZOPHRENIA, PARANOID TYPE
     Dosage: 4 MG, QD
     Route: 048
  25. CLOZARIL [Suspect]
     Active Substance: CLOZAPINE
     Dosage: 200 MG, QD
     Route: 048
     Dates: start: 20130604, end: 20130605

REACTIONS (8)
  - Blood pressure increased [Recovered/Resolved]
  - Akathisia [Not Recovered/Not Resolved]
  - Sedation [Recovered/Resolved]
  - Parkinsonism [Not Recovered/Not Resolved]
  - Abdominal discomfort [Recovered/Resolved]
  - Haemoglobin decreased [Recovered/Resolved]
  - Eosinophil count increased [Not Recovered/Not Resolved]
  - Constipation [Not Recovered/Not Resolved]

NARRATIVE: CASE EVENT DATE: 20130515
